FAERS Safety Report 5009750-X (Version None)
Quarter: 2006Q2

REPORT INFORMATION
  Report Type: 
  Country: None (occurrence: None)
  Receive Date: 20060524
  Receipt Date: 20040518
  Transmission Date: 20061013
  Serious: Yes (Congenital Anomaly)
  Sender: FDA-Public Use
  Company Number: US-ROCHE-368267

PATIENT
  Sex: Female
  Weight: 3 kg

DRUGS (3)
  1. ACCUTANE [Suspect]
     Indication: DRUG USE FOR UNKNOWN INDICATION
     Dosage: THE PATIENT WAS NOT PRESCRIBED ISOTRETINOIN, SHE TOOK ANOTHER PERSON'S PRESCRIPTION.
     Dates: start: 20040314, end: 20040417
  2. CLEOCIN HYDROCHLORIDE [Concomitant]
     Dates: start: 20040524, end: 20040527
  3. DRUGS UNKNOWN [Concomitant]
     Indication: VITAMIN SUPPLEMENTATION
     Dosage: REPORTED AS: NOVANATAL.
     Dates: start: 20040504

REACTIONS (7)
  - CONGENITAL ANOMALY [None]
  - DACRYOSTENOSIS CONGENITAL [None]
  - DRUG EXPOSURE DURING PREGNANCY [None]
  - EYELID PTOSIS CONGENITAL [None]
  - GROWTH RETARDATION [None]
  - SKIN HYPOPIGMENTATION [None]
  - UPPER RESPIRATORY TRACT INFECTION [None]
